FAERS Safety Report 7401708-6 (Version None)
Quarter: 2011Q1

REPORT INFORMATION
  Report Type: 
  Country: None (occurrence: None)
  Receive Date: 20110329
  Receipt Date: 20110315
  Transmission Date: 20110831
  Serious: Yes (Hospitalization)
  Sender: FDA-Public Use
  Company Number: DAV-AE-AMO-11-006

PATIENT
  Age: 13 Year
  Sex: Male

DRUGS (2)
  1. CLAVULANATE POTASSIUM [Concomitant]
  2. AMOXICILLIN [Suspect]
     Dosage: 500 MG

REACTIONS (3)
  - PRODUCT QUALITY ISSUE [None]
  - RASH PRURITIC [None]
  - KOUNIS SYNDROME [None]
